FAERS Safety Report 21446701 (Version 1)
Quarter: 2022Q4

REPORT INFORMATION
  Report Type: Spontaneous
  Country: US (occurrence: None)
  Receive Date: 20221011
  Receipt Date: 20221011
  Transmission Date: 20230112
  Serious: Yes (Death)
  Sender: FDA-Public Use
  Company Number: None

PATIENT
  Age: 89 Year
  Sex: Male
  Weight: 78.11 kg

DRUGS (14)
  1. ABIRATERONE [Suspect]
     Active Substance: ABIRATERONE
     Indication: Prostate cancer
     Dosage: FREQUENCY : DAILY;?
     Route: 048
     Dates: start: 202209, end: 20221003
  2. ABIRATERONE [Concomitant]
     Active Substance: ABIRATERONE
  3. ALLOPURINOL [Concomitant]
     Active Substance: ALLOPURINOL
  4. ATORVASTATIN [Concomitant]
     Active Substance: ATORVASTATIN
  5. CELECOXIB [Concomitant]
     Active Substance: CELECOXIB
  6. CEPHALEXIN [Concomitant]
     Active Substance: CEPHALEXIN
  7. CITRACAL +D3 [Concomitant]
  8. FINASTERIDE [Concomitant]
     Active Substance: FINASTERIDE
  9. ISOSORBIDE [Concomitant]
     Active Substance: ISOSORBIDE
  10. LUPRON [Concomitant]
     Active Substance: LEUPROLIDE ACETATE
  11. METOPROLOL [Concomitant]
     Active Substance: METOPROLOL
  12. OMEPRAZOLE [Concomitant]
     Active Substance: OMEPRAZOLE
  13. OXYBUTYNIN [Concomitant]
     Active Substance: OXYBUTYNIN
  14. PREDNISONE [Concomitant]
     Active Substance: PREDNISONE

REACTIONS (1)
  - Death [None]
